FAERS Safety Report 16967774 (Version 1)
Quarter: 2019Q4

REPORT INFORMATION
  Report Type: Spontaneous
  Country: US (occurrence: US)
  Receive Date: 20191028
  Receipt Date: 20191028
  Transmission Date: 20200122
  Serious: No
  Sender: FDA-Public Use
  Company Number: US-MATRIXX INITIATIVES, INC.-2076085

PATIENT
  Age: 33 Year
  Sex: Female
  Weight: 86.36 kg

DRUGS (2)
  1. UNSPECIFIED PSYCHIATRIC MEDICATIONS [Concomitant]
  2. ZICAM COLD REMEDY RAPIDMELTS [Suspect]
     Active Substance: HOMEOPATHICS\ZINC ACETATE ANHYDROUS\ZINC GLUCONATE
     Indication: NASOPHARYNGITIS
     Route: 048
     Dates: start: 20191015, end: 20191019

REACTIONS (2)
  - Dysgeusia [None]
  - Ageusia [None]
